FAERS Safety Report 19841236 (Version 1)
Quarter: 2021Q3

REPORT INFORMATION
  Report Type: Spontaneous
  Country: US (occurrence: US)
  Receive Date: 20210916
  Receipt Date: 20210916
  Transmission Date: 20211014
  Serious: Yes (Other)
  Sender: FDA-Public Use
  Company Number: NVSC2021US203405

PATIENT
  Sex: Male

DRUGS (27)
  1. SIPULEUCEL?T [Suspect]
     Active Substance: SIPULEUCEL-T
     Indication: PROSTATIC SPECIFIC ANTIGEN INCREASED
     Dosage: UNK (INFUSION)
     Route: 065
     Dates: start: 20210715
  2. SIPULEUCEL?T [Suspect]
     Active Substance: SIPULEUCEL-T
     Indication: BLOOD ALKALINE PHOSPHATASE INCREASED
  3. DOCETAXEL. [Suspect]
     Active Substance: DOCETAXEL
     Indication: PROSTATIC SPECIFIC ANTIGEN INCREASED
  4. BICALUTAMIDE. [Suspect]
     Active Substance: BICALUTAMIDE
     Indication: BLOOD ALKALINE PHOSPHATASE INCREASED
  5. ZOLADEX [Suspect]
     Active Substance: GOSERELIN ACETATE
     Indication: BLOOD ALKALINE PHOSPHATASE INCREASED
  6. ENZALUTAMIDE [Suspect]
     Active Substance: ENZALUTAMIDE
     Indication: BLOOD ALKALINE PHOSPHATASE INCREASED
  7. LUPRON [Suspect]
     Active Substance: LEUPROLIDE ACETATE
     Indication: BLOOD ALKALINE PHOSPHATASE INCREASED
  8. PREDNISONE. [Suspect]
     Active Substance: PREDNISONE
     Indication: PROSTATE CANCER METASTATIC
     Dosage: UNK
     Route: 065
     Dates: start: 20200204, end: 20200910
  9. PREDNISONE. [Suspect]
     Active Substance: PREDNISONE
     Indication: PROSTATIC SPECIFIC ANTIGEN INCREASED
     Dosage: UNK
     Route: 065
     Dates: start: 20200528, end: 20200910
  10. ABIRATERONE. [Suspect]
     Active Substance: ABIRATERONE ACETATE
     Indication: PROSTATIC SPECIFIC ANTIGEN INCREASED
  11. ZOLADEX [Suspect]
     Active Substance: GOSERELIN ACETATE
     Indication: PROSTATIC SPECIFIC ANTIGEN INCREASED
  12. ABIRATERONE. [Suspect]
     Active Substance: ABIRATERONE ACETATE
     Indication: BLOOD ALKALINE PHOSPHATASE INCREASED
  13. CABAZITAXEL [Suspect]
     Active Substance: CABAZITAXEL
     Indication: PROSTATIC SPECIFIC ANTIGEN INCREASED
  14. BICALUTAMIDE. [Suspect]
     Active Substance: BICALUTAMIDE
     Indication: PROSTATE CANCER METASTATIC
     Dosage: UNK
     Route: 065
     Dates: start: 20171017
  15. DOCETAXEL. [Suspect]
     Active Substance: DOCETAXEL
     Indication: BLOOD ALKALINE PHOSPHATASE INCREASED
  16. ENZALUTAMIDE [Suspect]
     Active Substance: ENZALUTAMIDE
     Indication: PROSTATE CANCER METASTATIC
     Dosage: UNK
     Route: 065
     Dates: start: 20180823
  17. ENZALUTAMIDE [Suspect]
     Active Substance: ENZALUTAMIDE
     Indication: PROSTATIC SPECIFIC ANTIGEN INCREASED
  18. PREDNISONE. [Suspect]
     Active Substance: PREDNISONE
     Indication: BLOOD ALKALINE PHOSPHATASE INCREASED
  19. ZOLADEX [Suspect]
     Active Substance: GOSERELIN ACETATE
     Indication: PROSTATE CANCER METASTATIC
     Dosage: UNK
     Route: 065
     Dates: start: 20170517, end: 20190718
  20. LUPRON [Suspect]
     Active Substance: LEUPROLIDE ACETATE
     Indication: PROSTATIC SPECIFIC ANTIGEN INCREASED
  21. ABIRATERONE. [Suspect]
     Active Substance: ABIRATERONE ACETATE
     Indication: PROSTATE CANCER METASTATIC
     Dosage: UNK
     Route: 065
     Dates: start: 20200204
  22. CABAZITAXEL [Suspect]
     Active Substance: CABAZITAXEL
     Indication: PROSTATE CANCER METASTATIC
     Dosage: UNK (CYCLE 1)
     Route: 065
     Dates: start: 20201228
  23. BICALUTAMIDE. [Suspect]
     Active Substance: BICALUTAMIDE
     Indication: PROSTATIC SPECIFIC ANTIGEN INCREASED
  24. DOCETAXEL. [Suspect]
     Active Substance: DOCETAXEL
     Indication: PROSTATE CANCER METASTATIC
     Dosage: UNK
     Route: 065
     Dates: start: 20200528, end: 20200910
  25. LUPRON [Suspect]
     Active Substance: LEUPROLIDE ACETATE
     Indication: PROSTATE CANCER METASTATIC
     Dosage: UNK
     Route: 065
     Dates: start: 20190718
  26. CABAZITAXEL [Suspect]
     Active Substance: CABAZITAXEL
     Indication: BLOOD ALKALINE PHOSPHATASE INCREASED
  27. SIPULEUCEL?T [Suspect]
     Active Substance: SIPULEUCEL-T
     Indication: PROSTATE CANCER METASTATIC
     Dosage: UNK
     Route: 065
     Dates: start: 20210624

REACTIONS (5)
  - Product used for unknown indication [Unknown]
  - Bone lesion [Unknown]
  - Prostate cancer metastatic [Unknown]
  - Malignant neoplasm progression [Unknown]
  - Metastases to bone [Unknown]
